FAERS Safety Report 18045521 (Version 1)
Quarter: 2020Q3

REPORT INFORMATION
  Report Type: Report from Study
  Country: JP (occurrence: JP)
  Receive Date: 20200720
  Receipt Date: 20200720
  Transmission Date: 20201103
  Serious: Yes (Death)
  Sender: FDA-Public Use
  Company Number: JP-PFIZER INC-2020274465

PATIENT

DRUGS (3)
  1. PACLITAXEL. [Suspect]
     Active Substance: PACLITAXEL
     Indication: PANCREATIC CARCINOMA METASTATIC
     Dosage: 20 MG/M2, CYCLIC (ON DAYS 1, 8 AND 15, FOLLOWED BY 1 WEEK OF REST/REPEATED EVERY 4 WEEKS)
     Route: 033
  2. GEMCITABINE HYDROCHLORIDE. [Suspect]
     Active Substance: GEMCITABINE HYDROCHLORIDE
     Indication: PANCREATIC CARCINOMA METASTATIC
     Dosage: 800 MG/M2, CYCLIC (ON DAYS 1, 8 AND 15, FOLLOWED BY 1 WEEK OF REST/REPEATED EVERY 4 WEEKS)
     Route: 042
  3. NAB?PACLITAXEL [Suspect]
     Active Substance: PACLITAXEL
     Indication: PANCREATIC CARCINOMA METASTATIC
     Dosage: 100 MG/M2, CYCLIC (ON DAYS 1, 8 AND 15, FOLLOWED BY 1 WEEK OF REST/REPEATED EVERY 4 WEEKS)
     Route: 042

REACTIONS (1)
  - Gastrointestinal haemorrhage [Fatal]
